FAERS Safety Report 10722840 (Version 2)
Quarter: 2015Q2

REPORT INFORMATION
  Report Type: Report from Study
  Country: US (occurrence: US)
  Receive Date: 20150120
  Receipt Date: 20150608
  Transmission Date: 20150821
  Serious: Yes (Hospitalization, Other)
  Sender: FDA-Public Use
  Company Number: US-BIOGENIDEC-2015BI004233

PATIENT
  Age: 54 Year
  Sex: Male

DRUGS (2)
  1. AVONEX [Suspect]
     Active Substance: INTERFERON BETA-1A
     Indication: MULTIPLE SCLEROSIS
     Route: 030
     Dates: start: 20091016
  2. AVONEX [Suspect]
     Active Substance: INTERFERON BETA-1A
     Indication: MULTIPLE SCLEROSIS
     Route: 030
     Dates: start: 20101001, end: 201505

REACTIONS (14)
  - Cardiac failure congestive [Recovered/Resolved]
  - Upper respiratory tract congestion [Recovered/Resolved]
  - Labyrinthitis [Recovered/Resolved]
  - Drug hypersensitivity [Recovered/Resolved]
  - Multiple sclerosis relapse [Recovered/Resolved]
  - Sinusitis [Recovered/Resolved]
  - Deafness unilateral [Recovered/Resolved]
  - Feeling abnormal [Recovered/Resolved]
  - Lung infection [Unknown]
  - Influenza like illness [Recovered/Resolved]
  - Respiratory distress [Recovered/Resolved]
  - Tremor [Unknown]
  - Reflexes abnormal [Unknown]
  - Underdose [Recovered/Resolved]

NARRATIVE: CASE EVENT DATE: 2014
